FAERS Safety Report 21823551 (Version 1)
Quarter: 2023Q1

REPORT INFORMATION
  Report Type: Report from Study
  Country: US (occurrence: None)
  Receive Date: 20230105
  Receipt Date: 20230105
  Transmission Date: 20230418
  Serious: Yes (Death)
  Sender: FDA-Public Use
  Company Number: 2023A002405

PATIENT
  Sex: Female

DRUGS (1)
  1. LYNPARZA [Suspect]
     Active Substance: OLAPARIB
     Route: 048

REACTIONS (6)
  - Nausea [Fatal]
  - Feeling abnormal [Unknown]
  - Apathy [Unknown]
  - Decreased appetite [Unknown]
  - Taste disorder [Unknown]
  - Abdominal pain upper [Unknown]
